FAERS Safety Report 10310991 (Version 2)
Quarter: 2014Q3

REPORT INFORMATION
  Report Type: Spontaneous
  Country: CL (occurrence: None)
  Receive Date: 20140714
  Receipt Date: 20140721
  Transmission Date: 20150326
  Serious: Yes (Other)
  Sender: FDA-Public Use
  Company Number: 2014188233

PATIENT
  Age: 47 Year
  Sex: Female

DRUGS (3)
  1. INSULIN [Concomitant]
     Active Substance: INSULIN NOS
  2. IBUPROFEN (IBUPROFEN) [Concomitant]
     Active Substance: IBUPROFEN
  3. FRAGMIN [Suspect]
     Active Substance: DALTEPARIN SODIUM
     Indication: THROMBOSIS
     Route: 030
     Dates: start: 201405, end: 201405

REACTIONS (4)
  - Incorrect route of drug administration [None]
  - Paralysis [None]
  - Limb discomfort [None]
  - Pain [None]
